FAERS Safety Report 6273693-4 (Version None)
Quarter: 2009Q3

REPORT INFORMATION
  Report Type: 
  Country: None (occurrence: None)
  Receive Date: 20090713
  Receipt Date: 20080722
  Transmission Date: 20100115
  Serious: Yes (Other)
  Sender: FDA-Public Use
  Company Number: 576859

PATIENT
  Age: 72 Year
  Sex: Female

DRUGS (6)
  1. BONIVA [Suspect]
     Indication: OSTEOPOROSIS
     Dosage: 150 MG 1 PER MONTH
     Dates: start: 20060101
  2. ATENOLOL [Concomitant]
  3. BENICAR HCT [Concomitant]
  4. TEKTURNA [Concomitant]
  5. AMLODIPINE BESYLATE [Concomitant]
  6. LIPITOR [Concomitant]

REACTIONS (2)
  - PAIN IN JAW [None]
  - TOOTH ABSCESS [None]
